FAERS Safety Report 24357451 (Version 1)
Quarter: 2024Q3

REPORT INFORMATION
  Report Type: Spontaneous
  Country: ID (occurrence: ID)
  Receive Date: 20240924
  Receipt Date: 20240924
  Transmission Date: 20241016
  Serious: Yes (Life-Threatening, Hospitalization)
  Sender: INTERCHEM
  Company Number: ID-HQ SPECIALTY-ID-2024INT000086

PATIENT

DRUGS (15)
  1. DEXMEDETOMIDINE HYDROCHLORIDE [Suspect]
     Active Substance: DEXMEDETOMIDINE HYDROCHLORIDE
     Indication: Back pain
     Dosage: 0.8 MICROGRAM PER MILLIGRAM, QH
     Route: 065
  2. PREGABALIN [Suspect]
     Active Substance: PREGABALIN
     Indication: Back pain
     Dosage: HIGH DOSES, 75 MG, Q12H
     Route: 065
  3. KETAMINE [Suspect]
     Active Substance: KETAMINE
     Indication: Back pain
     Dosage: INTERMITTENT-HIGH DOSES
     Route: 065
  4. FENTANYL [Suspect]
     Active Substance: FENTANYL\FENTANYL CITRATE
     Indication: Back pain
     Dosage: INTERMITTENT-HIGH DOSES
     Route: 065
  5. PROPOFOL [Suspect]
     Active Substance: PROPOFOL
     Indication: Back pain
     Dosage: UP TO 100 MG/HOUR-HIGH DOSES
     Route: 065
  6. CELECOXIB [Suspect]
     Active Substance: CELECOXIB
     Indication: Back pain
     Dosage: HIGH DOSES
     Route: 065
  7. TRAMADOL [Suspect]
     Active Substance: TRAMADOL\TRAMADOL HYDROCHLORIDE
     Indication: Back pain
     Dosage: HIGH DOSES, 100 MG, Q8H
     Route: 065
  8. MORPHINE [Suspect]
     Active Substance: MORPHINE
     Indication: Back pain
     Dosage: 2 MG, UNK
     Route: 042
  9. MORPHINE [Suspect]
     Active Substance: MORPHINE
     Indication: Breakthrough pain
     Dosage: 15 MG, QD
     Route: 042
  10. METHYLPREDNISOLONE [Concomitant]
     Active Substance: METHYLPREDNISOLONE
     Indication: Meningitis bacterial
     Dosage: UNK, UNK
     Route: 065
  11. DULOXETINE [Concomitant]
     Active Substance: DULOXETINE
     Indication: Back pain
     Dosage: UNK, UNK
     Route: 065
  12. DULOXETINE [Concomitant]
     Active Substance: DULOXETINE
     Indication: Neuralgia
  13. RISPERIDONE [Concomitant]
     Active Substance: RISPERIDONE
     Indication: Back pain
     Dosage: UNK, UNK
     Route: 065
  14. RISPERIDONE [Concomitant]
     Active Substance: RISPERIDONE
     Indication: Neuralgia
  15. MEROPENEM [Concomitant]
     Active Substance: MEROPENEM
     Indication: Meningitis bacterial
     Dosage: UNK, UNK
     Route: 065

REACTIONS (4)
  - Sedation [Unknown]
  - Altered state of consciousness [Unknown]
  - Mood altered [Unknown]
  - Insomnia [Unknown]
